FAERS Safety Report 14580985 (Version 6)
Quarter: 2019Q1

REPORT INFORMATION
  Report Type: Spontaneous
  Country: US (occurrence: US)
  Receive Date: 20180228
  Receipt Date: 20190117
  Transmission Date: 20190417
  Serious: No
  Sender: FDA-Public Use
  Company Number: US-PFIZER INC-2018079685

PATIENT
  Age: 78 Year
  Sex: Female
  Weight: 77 kg

DRUGS (22)
  1. IBRANCE [Suspect]
     Active Substance: PALBOCICLIB
     Dosage: 100 MG, CYCLIC (ONE FOR 21 DAYS AND OFF FOR 7 DAYS)
  2. LEVOTHYROXINE. [Concomitant]
     Active Substance: LEVOTHYROXINE
     Indication: HYPOTHYROIDISM
     Dosage: 137 MG, 1X/DAY
  3. BENADRYL [Concomitant]
     Active Substance: DIPHENHYDRAMINE HYDROCHLORIDE
     Indication: HYPERSENSITIVITY
     Dosage: 25 MG, 1X/DAY
  4. IBRANCE [Suspect]
     Active Substance: PALBOCICLIB
     Indication: BREAST CANCER METASTATIC
     Dosage: UNK, CYCLIC (TAKES IBRANCE AT NIGHT, 21 DAY REGIMEN)
  5. FASLODEX [Suspect]
     Active Substance: FULVESTRANT
     Indication: BREAST CANCER METASTATIC
     Dosage: UNK, MONTHLY
     Dates: start: 201710
  6. POTASSIUM CHLORIDE. [Concomitant]
     Active Substance: POTASSIUM CHLORIDE
     Indication: BLOOD POTASSIUM
     Dosage: 20 MG, 1X/DAY
  7. LASIX [Concomitant]
     Active Substance: FUROSEMIDE
     Dosage: 80 MG, 1X/DAY
  8. SIMVASTATIN. [Suspect]
     Active Substance: SIMVASTATIN
     Indication: BLOOD CHOLESTEROL
     Dosage: UNK
  9. XGEVA [Suspect]
     Active Substance: DENOSUMAB
     Indication: BREAST CANCER METASTATIC
     Dosage: UNK, EVERY 3 MONTHS
     Dates: start: 201710
  10. BABY ASPIRIN [Concomitant]
     Active Substance: ASPIRIN
     Dosage: 81 MG, 1X/DAY (ONCE IN THE EVENING)
  11. ULTRAM [Concomitant]
     Active Substance: TRAMADOL HYDROCHLORIDE
     Indication: PAIN
     Dosage: 50 MG, AS NEEDED
  12. IBRANCE [Suspect]
     Active Substance: PALBOCICLIB
     Dosage: 100 MG, CYCLIC (DAILY FOR 21 DAYS ON, 7 DAYS OFF)
     Route: 048
     Dates: start: 2017
  13. COREG [Concomitant]
     Active Substance: CARVEDILOL
     Indication: HYPERTENSION
     Dosage: 25 MG, 2X/DAY
  14. CELECOXIB. [Concomitant]
     Active Substance: CELECOXIB
     Indication: ANTIINFLAMMATORY THERAPY
     Dosage: 200 MG, 1X/DAY
  15. VOLTAREN [DICLOFENAC DIETHYLAMINE] [Concomitant]
     Active Substance: DICLOFENAC DIETHYLAMINE
     Indication: PAIN
     Dosage: UNK, AS NEEDED
  16. CENTRUM SILVER [ASCORBIC ACID;BIOTIN;BORON;CALCIUM;CALCIUM PANTOTHENAT [Concomitant]
     Indication: HYPOVITAMINOSIS
     Dosage: UNK, 1X/DAY
  17. ZOLPIDEM [Concomitant]
     Active Substance: ZOLPIDEM\ZOLPIDEM TARTRATE
     Indication: SLEEP DISORDER
     Dosage: 10 MG, 1X/DAY (ONE EVERY NIGHT)
  18. OXYBUTYNIN. [Concomitant]
     Active Substance: OXYBUTYNIN CHLORIDE
     Indication: HYPERTONIC BLADDER
     Dosage: 5 MG, 1X/DAY
  19. COREG [Concomitant]
     Active Substance: CARVEDILOL
     Dosage: 50 MG, 1X/DAY
  20. METOCLOPRAMIDE. [Concomitant]
     Active Substance: METOCLOPRAMIDE
     Indication: GASTROOESOPHAGEAL REFLUX DISEASE
     Dosage: 5 MG, UNK (AN HOUR BEFORE MEAL)
  21. CELEBREX [Concomitant]
     Active Substance: CELECOXIB
     Indication: INFLAMMATION
     Dosage: UNK
  22. CYCLOBENZAPRINE HCL [Concomitant]
     Active Substance: CYCLOBENZAPRINE HYDROCHLORIDE
     Indication: MUSCLE RELAXANT THERAPY
     Dosage: 10 MG, 2X/DAY

REACTIONS (18)
  - Abdominal discomfort [Unknown]
  - Body height decreased [Unknown]
  - Condition aggravated [Unknown]
  - Gastrooesophageal reflux disease [Not Recovered/Not Resolved]
  - Influenza [Unknown]
  - Vomiting [Unknown]
  - Gastric disorder [Unknown]
  - Eating disorder [Unknown]
  - Scoliosis [Unknown]
  - Dysgeusia [Not Recovered/Not Resolved]
  - Coating in mouth [Unknown]
  - Nasopharyngitis [Unknown]
  - Condition aggravated [Not Recovered/Not Resolved]
  - Alopecia [Recovering/Resolving]
  - Dysgeusia [Unknown]
  - Trichorrhexis [Not Recovered/Not Resolved]
  - Gastric hypomotility [Unknown]
  - Underdose [Unknown]

NARRATIVE: CASE EVENT DATE: 2017
